FAERS Safety Report 13301233 (Version 1)
Quarter: 2017Q1

REPORT INFORMATION
  Report Type: Spontaneous
  Country: US (occurrence: US)
  Receive Date: 20170307
  Receipt Date: 20170307
  Transmission Date: 20170428
  Serious: No
  Sender: FDA-Public Use
  Company Number: US-PFIZER INC-2017090577

PATIENT
  Age: 70 Year
  Sex: Female
  Weight: 111.57 kg

DRUGS (1)
  1. IBRANCE [Suspect]
     Active Substance: PALBOCICLIB
     Indication: BREAST CANCER FEMALE
     Dosage: 125 MG, CYCLIC (ONCE A DAY; 21 ON, 7 OFF)
     Route: 048
     Dates: start: 201702

REACTIONS (4)
  - Nausea [Unknown]
  - Vomiting [Unknown]
  - Pyrexia [Unknown]
  - Renal pain [Unknown]

NARRATIVE: CASE EVENT DATE: 201702
